FAERS Safety Report 7584403-2 (Version None)
Quarter: 2011Q2

REPORT INFORMATION
  Report Type: 
  Country: None (occurrence: None)
  Receive Date: 20110630
  Receipt Date: 20110509
  Transmission Date: 20111010
  Serious: Yes (Hospitalization, Other)
  Sender: FDA-Public Use
  Company Number: US-BAYER-201020733NA

PATIENT
  Sex: Female
  Weight: 65.76 kg

DRUGS (3)
  1. YASMIN [Suspect]
     Indication: PRODUCT USED FOR UNKNOWN INDICATION
     Dosage: UNK
     Route: 048
     Dates: start: 20070101, end: 20090101
  2. DROSPIRENONE AND ETHINYL ESTRADIOL [Suspect]
     Dosage: UNK
     Dates: start: 20070101, end: 20090101
  3. YAZ [Suspect]
     Dosage: UNK

REACTIONS (8)
  - DIARRHOEA [None]
  - ANXIETY [None]
  - DEPRESSION [None]
  - CHOLECYSTECTOMY [None]
  - CONSTIPATION [None]
  - ABDOMINAL DISTENSION [None]
  - FLATULENCE [None]
  - DYSPEPSIA [None]
